FAERS Safety Report 8459112 (Version 2)
Quarter: 2012Q4

REPORT INFORMATION
  Report Type: 
  Country: US (occurrence: US)
  Receive Date: 20120314
  Receipt Date: 20121008
  Transmission Date: 20130627
  Serious: Yes (Other)
  Sender: FDA-Public Use
  Company Number: US-ELI_LILLY_AND_COMPANY-US201203001788

PATIENT
  Sex: Female

DRUGS (2)
  1. HUMATROPE [Suspect]
     Indication: HYPOPITUITARISM
     Dosage: 0.06 mg, qd
     Route: 058
  2. HUMATROPE [Suspect]
     Dosage: 0.4 mg, qd
     Route: 058

REACTIONS (6)
  - Deafness unilateral [Not Recovered/Not Resolved]
  - Hypoacusis [Not Recovered/Not Resolved]
  - Ear operation [Unknown]
  - Eye operation [Unknown]
  - Unevaluable event [Unknown]
  - Drug ineffective [Unknown]
